FAERS Safety Report 11935699 (Version 1)
Quarter: 2016Q1

REPORT INFORMATION
  Report Type: Spontaneous
  Country: US (occurrence: US)
  Receive Date: 20160121
  Receipt Date: 20160121
  Transmission Date: 20160526
  Serious: Yes (Death)
  Sender: FDA-Public Use
  Company Number: PHEH2016US001591

PATIENT
  Age: 46 Year

DRUGS (1)
  1. TYKERB [Suspect]
     Active Substance: LAPATINIB DITOSYLATE
     Indication: NEOPLASM MALIGNANT
     Dosage: 250 MG  (05 TABLETS 01 HOUR BEFORE OR 01 HOUR AFTER A MEAL), QD
     Route: 048
     Dates: start: 20151021

REACTIONS (1)
  - Death [Fatal]

NARRATIVE: CASE EVENT DATE: 20160114
